FAERS Safety Report 13839619 (Version 1)
Quarter: 2017Q3

REPORT INFORMATION
  Report Type: Spontaneous
  Country: ZA (occurrence: ZA)
  Receive Date: 20170807
  Receipt Date: 20170807
  Transmission Date: 20171127
  Serious: Yes (Death, Other)
  Sender: FDA-Public Use
  Company Number: ZA-PFIZER INC-2017336050

PATIENT
  Age: 58 Year
  Sex: Male

DRUGS (7)
  1. COLISTIN [Suspect]
     Active Substance: COLISTIN
     Dosage: UNK
     Dates: start: 20170307
  2. KLACID /00984601/ [Suspect]
     Active Substance: CLARITHROMYCIN
     Dosage: UNK
     Dates: start: 20160302
  3. MYCAMINE [Suspect]
     Active Substance: MICAFUNGIN SODIUM
     Dosage: UNK
     Dates: start: 20160302
  4. MERONEM [Suspect]
     Active Substance: MEROPENEM
     Dosage: UNK
     Dates: start: 20160301
  5. VFEND [Suspect]
     Active Substance: VORICONAZOLE
     Dosage: UNK
     Dates: start: 20160308
  6. TEICOPLANIN [Suspect]
     Active Substance: TEICOPLANIN
     Dosage: UNK
     Dates: start: 20160301
  7. TYGACIL [Suspect]
     Active Substance: TIGECYCLINE
     Dosage: UNK
     Dates: start: 20160308

REACTIONS (7)
  - Pseudomonas infection [Unknown]
  - Acute myeloid leukaemia [Unknown]
  - Systemic lupus erythematosus [Unknown]
  - Cardiac failure chronic [Unknown]
  - Body temperature increased [Unknown]
  - Death [Fatal]
  - Mechanical ventilation [Unknown]
